FAERS Safety Report 12923668 (Version 1)
Quarter: 2016Q4

REPORT INFORMATION
  Report Type: Spontaneous
  Country: US (occurrence: US)
  Receive Date: 20161109
  Receipt Date: 20161109
  Transmission Date: 20170207
  Serious: No
  Sender: FDA-Public Use
  Company Number: US-PFIZER INC-2016518701

PATIENT
  Age: 47 Year
  Sex: Male
  Weight: 104 kg

DRUGS (1)
  1. VIAGRA [Suspect]
     Active Substance: SILDENAFIL CITRATE
     Indication: ERECTILE DYSFUNCTION
     Dosage: 25 MG, 1X/DAY, AT NIGHT
     Dates: start: 201608

REACTIONS (3)
  - Discomfort [Not Recovered/Not Resolved]
  - Erection increased [Recovering/Resolving]
  - Ejaculation disorder [Not Recovered/Not Resolved]

NARRATIVE: CASE EVENT DATE: 201609
